FAERS Safety Report 7321682-0 (Version None)
Quarter: 2011Q1

REPORT INFORMATION
  Report Type: 
  Country: None (occurrence: None)
  Receive Date: 20110228
  Receipt Date: 20100721
  Transmission Date: 20110831
  Serious: Yes (Other)
  Sender: FDA-Public Use
  Company Number: US-PFIZER INC-2010057318

PATIENT
  Sex: Female
  Weight: 85.079 kg

DRUGS (3)
  1. SEROQUEL [Suspect]
     Dosage: 200 MG, 1X/DAY
     Dates: start: 20100408, end: 20100506
  2. GEODON [Suspect]
     Indication: POST-TRAUMATIC STRESS DISORDER
     Dosage: 240 MG, 1X/DAY
     Dates: start: 20080801, end: 20100408
  3. GEODON [Suspect]
     Indication: INSOMNIA

REACTIONS (3)
  - WEIGHT DECREASED [None]
  - EXTRAPYRAMIDAL DISORDER [None]
  - INSOMNIA [None]
